FAERS Safety Report 20303904 (Version 7)
Quarter: 2023Q1

REPORT INFORMATION
  Report Type: Report from Study
  Country: US (occurrence: None)
  Receive Date: 20220106
  Receipt Date: 20230106
  Transmission Date: 20230417
  Serious: Yes (Disabling)
  Sender: FDA-Public Use
  Company Number: US-ROCHE-2992171

PATIENT
  Age: 58 Year
  Sex: Male
  Weight: 94 kg

DRUGS (37)
  1. RANIBIZUMAB [Suspect]
     Active Substance: RANIBIZUMAB
     Indication: Diabetic retinal oedema
     Dosage: START DATE OF MOST RECENT DOSE OF STUDY DRUG PRIOR TO AE AND SAE: 10/NOV/2021 (100 MG/ML)
     Route: 050
     Dates: start: 20200812
  2. RANIBIZUMAB [Suspect]
     Active Substance: RANIBIZUMAB
  3. RANIBIZUMAB [Suspect]
     Active Substance: RANIBIZUMAB
  4. RANIBIZUMAB [Suspect]
     Active Substance: RANIBIZUMAB
  5. RANIBIZUMAB [Suspect]
     Active Substance: RANIBIZUMAB
  6. RANIBIZUMAB [Suspect]
     Active Substance: RANIBIZUMAB
  7. TYLENOL [Concomitant]
     Active Substance: ACETAMINOPHEN
     Route: 048
  8. AMIODARONE [Concomitant]
     Active Substance: AMIODARONE
     Indication: Atrial fibrillation
     Dosage: DRUG DOSE FIRST ADMINISTERED IS 200 TABLET ;ONGOING: YES
     Route: 048
  9. METOPROLOL TARTRATE [Concomitant]
     Active Substance: METOPROLOL TARTRATE
     Indication: Hypertension
     Dosage: DRUG DOSE FIRST ADMINISTERED IS 25 TABLET ;ONGOING: YES
     Route: 048
  10. MONTELUKAST SODIUM [Concomitant]
     Active Substance: MONTELUKAST SODIUM
     Indication: Hypersensitivity
     Dosage: DRUG DOSE FIRST ADMINISTERED IS 10 TABLET ;ONGOING: YES
     Route: 048
  11. ATORVASTATIN [Concomitant]
     Active Substance: ATORVASTATIN
     Indication: Blood cholesterol increased
     Dosage: DRUG DOSE FIRST ADMINISTERED IS 40 TABLET ;ONGOING: YES
     Route: 048
  12. NICOTINE [Concomitant]
     Active Substance: NICOTINE
  13. EXCEDRIN MIGRAINE [Concomitant]
     Active Substance: ACETAMINOPHEN\ASPIRIN\CAFFEINE
     Dosage: DRUG DOSE FIRST ADMINISTERED IS 250 TABLET?GIVEN FOR PROPHYLAXIS IS YES ;ONGOING: YES
     Route: 048
  14. NITROGLYCERIN [Concomitant]
     Active Substance: NITROGLYCERIN
     Indication: Atrial fibrillation
     Dosage: DRUG DOSE FIRST ADMINISTERED IS 0.4 TABLET ;ONGOING: YES
     Route: 048
  15. FLUTICASONE PROPIONATE [Concomitant]
     Active Substance: FLUTICASONE PROPIONATE
     Indication: Hypersensitivity
  16. VENTOLIN HFA [Concomitant]
     Active Substance: ALBUTEROL SULFATE
     Indication: Hypersensitivity
     Dosage: DRUG DOSE FIRST ADMINISTERED IS 90 INHALATION ;ONGOING: YES
     Route: 055
  17. DOCUSATE SODIUM [Concomitant]
     Active Substance: DOCUSATE SODIUM
     Dosage: GIVEN FOR PROPHYLAXIS IS YES ;ONGOING: YES
     Route: 048
  18. SILDENAFIL [Concomitant]
     Active Substance: SILDENAFIL
     Indication: Erectile dysfunction
     Dosage: YES
     Route: 048
  19. EMPAGLIFLOZIN [Concomitant]
     Active Substance: EMPAGLIFLOZIN
     Indication: Hyperlipidaemia
     Dosage: DRUG DOSE FIRST ADMINISTERED IS 10 TABLET ;ONGOING: YES
     Route: 048
  20. AMITRIPTYLINE [Concomitant]
     Active Substance: AMITRIPTYLINE
     Indication: Depression
     Dosage: DRUG DOSE FIRST ADMINISTERED IS 10 TABLET ;ONGOING: YES
     Route: 048
     Dates: end: 20221214
  21. ZOLPIDEM TARTRATE [Concomitant]
     Active Substance: ZOLPIDEM TARTRATE
     Indication: Insomnia
     Dosage: DRUG DOSE FIRST ADMINISTERED IS 10 TABLET ;ONGOING: YES
     Route: 048
  22. IPRATROPIUM [Concomitant]
     Active Substance: IPRATROPIUM
     Indication: Rhinitis allergic
     Dosage: YES
  23. TERBINAFINE [Concomitant]
     Active Substance: TERBINAFINE
     Indication: Gastritis
     Dosage: DRUG DOSE FIRST ADMINISTERED IS 250 TABLET ;ONGOING: YES
     Route: 048
     Dates: start: 20210708
  24. OMEPRAZOLE [Concomitant]
     Active Substance: OMEPRAZOLE
     Indication: Gastritis
     Dosage: DRUG DOSE FIRST ADMINISTERED IS 20 TABLET ;ONGOING: YES
     Route: 048
     Dates: start: 20210708
  25. TOUJEO [Concomitant]
     Active Substance: INSULIN GLARGINE
     Indication: Type 2 diabetes mellitus
     Dosage: DRUG DOSE FIRST ADMINISTERED IS 42 U ;ONGOING: YES
     Route: 058
     Dates: start: 20211029
  26. ASPIRIN [Concomitant]
     Active Substance: ASPIRIN
     Dosage: DRUG DOSE FIRST ADMINISTERED IS 81 TABLET?GIVEN FOR PROPHYLAXIS IS YES ;ONGOING: YES
     Route: 048
     Dates: start: 20211111
  27. PREDNISOLONE [Concomitant]
     Active Substance: PREDNISOLONE
     Dosage: GIVEN FOR PROPHYLAXIS IS YES ;ONGOING: NO
     Route: 047
     Dates: start: 20211125, end: 20211201
  28. PREDNISOLONE [Concomitant]
     Active Substance: PREDNISOLONE
     Dosage: GIVEN FOR PROPHYLAXIS IS YES ;ONGOING: NO
     Route: 047
     Dates: start: 20211202, end: 20211208
  29. ELIQUIS [Concomitant]
     Active Substance: APIXABAN
     Indication: Atrial fibrillation
     Dosage: DRUG DOSE FIRST ADMINISTERED IS 5  ;ONGOING: YES
     Route: 048
     Dates: start: 20211111
  30. BACTRIM [Concomitant]
     Active Substance: SULFAMETHOXAZOLE\TRIMETHOPRIM
     Indication: Skin ulcer
     Route: 048
     Dates: start: 20211221
  31. RANIBIZUMAB [Concomitant]
     Active Substance: RANIBIZUMAB
     Dosage: START DATE OF MOST RECENT DOSE OF STUDY DRUG PRIOR TO AE AND SAE: 08/DEC/2021 (6 MG/ML)?FELLOW EYE T
     Route: 050
     Dates: start: 20210514
  32. CLARITIN-D 24 HOUR [Concomitant]
     Active Substance: LORATADINE\PSEUDOEPHEDRINE SULFATE
     Indication: Hypersensitivity
     Route: 048
  33. METFORMIN [Concomitant]
     Active Substance: METFORMIN HYDROCHLORIDE
     Indication: Type 2 diabetes mellitus
     Route: 048
  34. TRIAMCINOLONE ACETONIDE [Concomitant]
     Active Substance: TRIAMCINOLONE ACETONIDE
     Indication: Myalgia
     Route: 030
     Dates: start: 20211229, end: 20211229
  35. CYANOCOBALAMIN [Concomitant]
     Active Substance: CYANOCOBALAMIN
     Route: 048
     Dates: start: 20220128
  36. CYCLOBENZAPRINE [Concomitant]
     Active Substance: CYCLOBENZAPRINE
     Indication: Muscle spasms
     Route: 048
     Dates: start: 20220128, end: 20220131
  37. JARDIANCE [Concomitant]
     Active Substance: EMPAGLIFLOZIN
     Indication: Type 2 diabetes mellitus
     Route: 048
     Dates: start: 20210222, end: 20221214

REACTIONS (1)
  - Uveitis [Recovered/Resolved]

NARRATIVE: CASE EVENT DATE: 20211225
